FAERS Safety Report 23910316 (Version 1)
Quarter: 2024Q2

REPORT INFORMATION
  Report Type: Spontaneous
  Country: US (occurrence: None)
  Receive Date: 20240525
  Receipt Date: 20240525
  Transmission Date: 20240715
  Serious: Yes (Hospitalization)
  Sender: FDA-Public Use
  Company Number: None

PATIENT
  Age: 69 Year
  Sex: Male
  Weight: 104.9 kg

DRUGS (3)
  1. FLUOROURACIL [Suspect]
     Active Substance: FLUOROURACIL
     Dates: end: 20240415
  2. LEUCOVORIN CALCIUM [Suspect]
     Active Substance: LEUCOVORIN CALCIUM
     Dates: end: 20240415
  3. OXALIPLATIN [Suspect]
     Active Substance: OXALIPLATIN
     Dates: end: 20240415

REACTIONS (8)
  - Body temperature increased [None]
  - Diarrhoea [None]
  - Vomiting [None]
  - Neutropenic colitis [None]
  - Enteritis [None]
  - White blood cell count decreased [None]
  - Blood potassium decreased [None]
  - Haemoglobin decreased [None]

NARRATIVE: CASE EVENT DATE: 20240429
